FAERS Safety Report 23259007 (Version 1)
Quarter: 2023Q4

REPORT INFORMATION
  Report Type: Report from Study
  Country: SE (occurrence: SE)
  Receive Date: 20231204
  Receipt Date: 20231204
  Transmission Date: 20240110
  Serious: Yes (Other)
  Sender: FDA-Public Use
  Company Number: SE-BAYER-2023A162343

PATIENT
  Age: 47 Year
  Sex: Female

DRUGS (1)
  1. MIRENA [Suspect]
     Active Substance: LEVONORGESTREL
     Dosage: 20?G/DAY
     Route: 015
     Dates: start: 20231108, end: 20231108

REACTIONS (5)
  - Syncope [Recovered/Resolved]
  - Seizure [Recovered/Resolved]
  - Procedural pain [None]
  - Complication of device insertion [None]
  - Procedural haemorrhage [None]

NARRATIVE: CASE EVENT DATE: 20231108
